FAERS Safety Report 18721349 (Version 1)
Quarter: 2021Q1

REPORT INFORMATION
  Report Type: Spontaneous
  Country: CN (occurrence: CN)
  Receive Date: 20210109
  Receipt Date: 20210109
  Transmission Date: 20210419
  Serious: Yes (Hospitalization, Other)
  Sender: FDA-Public Use
  Company Number: CN-JNJFOC-20210111190

PATIENT
  Age: 71 Year
  Sex: Male

DRUGS (5)
  1. ADALAT [Suspect]
     Active Substance: NIFEDIPINE
     Route: 048
     Dates: start: 20201101, end: 20201203
  2. ATORVASTATIN CALCIUM. [Concomitant]
     Active Substance: ATORVASTATIN CALCIUM
  3. RIVAROXABAN [Suspect]
     Active Substance: RIVAROXABAN
     Indication: ATRIAL FIBRILLATION
     Dosage: 10 MG, QD
     Route: 048
     Dates: start: 20200910, end: 20201203
  4. DOXAZOSIN MESYLATE. [Concomitant]
     Active Substance: DOXAZOSIN MESYLATE
  5. OLMESARTAN [Concomitant]
     Active Substance: OLMESARTAN

REACTIONS (16)
  - Upper gastrointestinal haemorrhage [Recovering/Resolving]
  - Gastric mucosal lesion [Unknown]
  - Oesophageal disorder [Unknown]
  - Incorrect dose administered [Unknown]
  - Asthenia [Recovering/Resolving]
  - Dizziness [Recovering/Resolving]
  - Amaurosis [Recovering/Resolving]
  - Faeces discoloured [Recovering/Resolving]
  - Oesophagitis [Unknown]
  - Hyperuricaemia [Unknown]
  - Diarrhoea [Recovering/Resolving]
  - Prescribed underdose [Unknown]
  - Renal failure [Unknown]
  - Haematemesis [Recovering/Resolving]
  - Shock haemorrhagic [Recovering/Resolving]
  - Lacunar infarction [Unknown]

NARRATIVE: CASE EVENT DATE: 20200910
